FAERS Safety Report 7724392-0 (Version None)
Quarter: 2011Q3

REPORT INFORMATION
  Report Type: 
  Country: None (occurrence: None)
  Receive Date: 20110901
  Receipt Date: 20110829
  Transmission Date: 20111222
  Serious: Yes (Other)
  Sender: FDA-Public Use
  Company Number: JP-PFIZER INC-2011200910

PATIENT
  Age: 45 Year
  Sex: Male

DRUGS (3)
  1. METHYCOBAL [Concomitant]
     Indication: BACK PAIN
     Dosage: 1000 UG DAILY
     Route: 048
     Dates: start: 20110714, end: 20110804
  2. LYRICA [Suspect]
     Indication: BACK PAIN
     Dosage: 150 MG DAILY
     Route: 048
     Dates: start: 20110714, end: 20110815
  3. LYRICA [Suspect]
     Dosage: 75 MG DAILY
     Route: 048
     Dates: start: 20110716, end: 20110804

REACTIONS (2)
  - BLADDER DISORDER [None]
  - ANORECTAL DISORDER [None]
